FAERS Safety Report 18034466 (Version 6)
Quarter: 2021Q3

REPORT INFORMATION
  Report Type: Spontaneous
  Country: US (occurrence: US)
  Receive Date: 20200716
  Receipt Date: 20210831
  Transmission Date: 20211014
  Serious: No
  Sender: FDA-Public Use
  Company Number: US-PFIZER INC-2019518138

PATIENT
  Age: 68 Year
  Sex: Female

DRUGS (1)
  1. LYRICA [Suspect]
     Active Substance: PREGABALIN
     Dosage: 75 MG, 4X/DAY, (TAKE 1 CAPSULE BY MOUTH EVERY 6 HOURS),(1 PO Q 6HRS)
     Route: 048

REACTIONS (2)
  - Feeling abnormal [Unknown]
  - Dyslexia [Unknown]
